FAERS Safety Report 4327769-9 (Version None)
Quarter: 2004Q1

REPORT INFORMATION
  Report Type: 
  Country: None (occurrence: None)
  Receive Date: 20040325
  Receipt Date: 20040310
  Transmission Date: 20041129
  Serious: Yes (Other)
  Sender: FDA-Public Use
  Company Number: US-JNJFOC-20040302565

PATIENT
  Age: 72 Year
  Sex: Female

DRUGS (18)
  1. DURAGESIC [Suspect]
     Indication: PAIN
     Dosage: SEE IMAGE
     Route: 062
     Dates: start: 20040201, end: 20040201
  2. DURAGESIC [Suspect]
     Indication: PAIN
     Dosage: SEE IMAGE
     Route: 062
     Dates: start: 20020101
  3. DURAGESIC [Suspect]
     Indication: PAIN
     Dosage: SEE IMAGE
     Route: 062
     Dates: start: 20040101
  4. HYDROCODONE (HYDROCODONE) [Concomitant]
  5. PREVACID [Concomitant]
  6. LOTREL (LOTREL) [Concomitant]
  7. ZOCOR [Concomitant]
  8. LORAZEPAM [Concomitant]
  9. AMBIEN [Concomitant]
  10. CELEBREX [Concomitant]
  11. ACETYLSALICYLIC ACID SRT [Concomitant]
  12. SINGULAIR (MONTLEUKAST SODIUM) [Concomitant]
  13. NASONEX (MOMETASONE FUROATE) INHALATION [Concomitant]
  14. COMBIVENT [Concomitant]
  15. IMIPRAMINE [Concomitant]
  16. PREMARIN [Concomitant]
  17. ATIVAN [Concomitant]
  18. PAMELOR [Concomitant]

REACTIONS (4)
  - ASTHMA [None]
  - CEREBROVASCULAR ACCIDENT [None]
  - DRY MOUTH [None]
  - NASAL DRYNESS [None]
